FAERS Safety Report 6313604-6 (Version None)
Quarter: 2009Q3

REPORT INFORMATION
  Report Type: 
  Country: None (occurrence: None)
  Receive Date: 20090814
  Receipt Date: 20090814
  Transmission Date: 20100115
  Serious: Yes (Death)
  Sender: FDA-Public Use
  Company Number: None

PATIENT
  Sex: Male

DRUGS (15)
  1. REVLIMID [Suspect]
     Indication: MULTIPLE MYELOMA
     Dosage: 25MG  DAILY 21D/28D ORALLY
     Route: 048
  2. DEXAMETHASONE [Concomitant]
  3. OMEPRAZOLE [Concomitant]
  4. NOVOLIN R [Concomitant]
  5. GLYBURIDE [Concomitant]
  6. LYRICA [Concomitant]
  7. SIMVASTATIN [Concomitant]
  8. COLESTID [Concomitant]
  9. LISINOPRIL [Concomitant]
  10. ATENOLOL [Concomitant]
  11. ASPIRIN [Concomitant]
  12. FOSAMAX [Concomitant]
  13. PROAIR HFA [Concomitant]
  14. ATROVENT [Concomitant]
  15. QVAR 40 [Concomitant]

REACTIONS (1)
  - DISEASE PROGRESSION [None]
